FAERS Safety Report 20921262 (Version 2)
Quarter: 2022Q2

REPORT INFORMATION
  Report Type: Spontaneous
  Country: HR (occurrence: HR)
  Receive Date: 20220606
  Receipt Date: 20220615
  Transmission Date: 20220721
  Serious: Yes (Other)
  Sender: FDA-Public Use
  Company Number: HR-BRISTOL-MYERS SQUIBB COMPANY-2022-042122

PATIENT
  Age: 71 Year
  Sex: Female
  Weight: 63 kg

DRUGS (25)
  1. AMLODIPINE [Suspect]
     Active Substance: AMLODIPINE BESYLATE
     Indication: Product used for unknown indication
     Dosage: 5 MILLIGRAM (5 MG)
  2. AMLODIPINE [Suspect]
     Active Substance: AMLODIPINE BESYLATE
     Dosage: 10 MILLIGRAM (10 MG)
  3. AMLODIPINE [Suspect]
     Active Substance: AMLODIPINE BESYLATE
     Dosage: 10 MILLIGRAM (10 MG)
  4. INDAPAMIDE [Suspect]
     Active Substance: INDAPAMIDE
     Indication: Product used for unknown indication
     Dosage: 2.5 MILLIGRAM (2.5 MG)
  5. INDAPAMIDE [Suspect]
     Active Substance: INDAPAMIDE
     Dosage: 1.25 MILLIGRAM (1.25 MG)
  6. INDAPAMIDE [Suspect]
     Active Substance: INDAPAMIDE
     Dosage: 2.5 MILLIGRAM (2.5 MG)
  7. INDAPAMIDE [Suspect]
     Active Substance: INDAPAMIDE
     Dosage: 1.25 MILLIGRAM (1.25 MG)
  8. PERINDOPRIL [Suspect]
     Active Substance: PERINDOPRIL
     Indication: Product used for unknown indication
     Dosage: 10 MILLIGRAM (10 MG)
  9. PERINDOPRIL [Suspect]
     Active Substance: PERINDOPRIL
     Dosage: 10 MILLIGRAM (10 MG)
  10. PERINDOPRIL [Suspect]
     Active Substance: PERINDOPRIL
     Dosage: 5 MILLIGRAM (5 MG)
  11. PERINDOPRIL [Suspect]
     Active Substance: PERINDOPRIL
     Dosage: 5 MILLIGRAM (5 MG)
  12. PERINDOPRIL [Suspect]
     Active Substance: PERINDOPRIL
     Dosage: 5 MILLIGRAM (5 MG)
  13. PERINDOPRIL [Suspect]
     Active Substance: PERINDOPRIL
     Dosage: 5 MILLIGRAM (5 MG)
  14. METOPROLOL [Suspect]
     Active Substance: METOPROLOL
     Indication: Product used for unknown indication
     Dosage: 25 MILLIGRAM (25 MG)
  15. METOPROLOL [Suspect]
     Active Substance: METOPROLOL
     Dosage: 50 MILLIGRAM (50 MG)
  16. METOPROLOL [Suspect]
     Active Substance: METOPROLOL
     Dosage: 25 MILLIGRAM (25 MG)
  17. METOPROLOL [Suspect]
     Active Substance: METOPROLOL
     Dosage: 50 MILLIGRAM (50 MG)
  18. PROPAFENONE [Suspect]
     Active Substance: PROPAFENONE
     Indication: Product used for unknown indication
     Dosage: 300 MILLIGRAM, QD (150 MG, 2X/DAY)
  19. PROPAFENONE [Suspect]
     Active Substance: PROPAFENONE
     Dosage: 300 MILLIGRAM, QD (150 MG, 2X/DAY)
  20. ELIQUIS [Suspect]
     Active Substance: APIXABAN
     Indication: Product used for unknown indication
     Dosage: 10 MILLIGRAM, QD (5 MG, 2X/DAY)
     Route: 005
  21. SOTALOL [Concomitant]
     Active Substance: SOTALOL
     Dosage: 40 MILLIGRAM, BID (2X40 MG)
  22. SOTALOL [Concomitant]
     Active Substance: SOTALOL
     Dosage: 40 MILLIGRAM, BID (2X40 MG)
  23. AMIODARONE [Concomitant]
     Active Substance: AMIODARONE
     Dosage: 3X1,2X1 AND THEN 1X1 TBL
  24. AMIODARONE [Concomitant]
     Active Substance: AMIODARONE
     Dosage: 3X1,2X1 AND THEN 1X1 TBL
  25. PACLITAXEL [Concomitant]
     Active Substance: PACLITAXEL
     Dosage: UNK

REACTIONS (5)
  - Breast cancer [Unknown]
  - Sinus node dysfunction [Unknown]
  - Laboratory test abnormal [Unknown]
  - Atrial fibrillation [Unknown]
  - Weight decreased [Unknown]

NARRATIVE: CASE EVENT DATE: 20210101
